FAERS Safety Report 4803880-0 (Version None)
Quarter: 2005Q3

REPORT INFORMATION
  Report Type: 
  Country: None (occurrence: None)
  Receive Date: 20050920
  Receipt Date: 20050615
  Transmission Date: 20060218
  Serious: No
  Sender: FDA-Public Use
  Company Number: US-YAMANOUCHI-YPA20050308

PATIENT
  Age: 58 Year
  Sex: Male
  Weight: 88.4514 kg

DRUGS (4)
  1. VESICARE [Suspect]
     Indication: HYPERTONIC BLADDER
     Dosage: 5 MG QD PO
     Route: 048
     Dates: start: 20050401, end: 20050501
  2. VESICARE [Suspect]
     Indication: HYPERTONIC BLADDER
     Dosage: 10 MG QD PO
     Route: 048
     Dates: start: 20050501
  3. LIPITOR [Concomitant]
  4. SYNTHROID [Concomitant]

REACTIONS (2)
  - CONSTIPATION [None]
  - DYSPEPSIA [None]
